FAERS Safety Report 5058314-0 (Version None)
Quarter: 2006Q2

REPORT INFORMATION
  Report Type: 
  Country: None (occurrence: None)
  Receive Date: 20060622
  Receipt Date: 20060308
  Transmission Date: 20061013
  Serious: Yes (Hospitalization)
  Sender: FDA-Public Use
  Company Number: US-JNJFOC-20060302947

PATIENT
  Age: 62 Year
  Sex: Male
  Weight: 111.1313 kg

DRUGS (3)
  1. FENTANYL [Suspect]
     Indication: PAIN
     Dosage: 150 UG/HR, 1 IN 72 HOUR, TRANSDERMAL
     Route: 062
     Dates: start: 20050201
  2. GLIMEPIRIDE (GLIMEPIRIDE) TABLET [Concomitant]
  3. AMIBID (GUAIFENESIN) INHALATION [Concomitant]

REACTIONS (2)
  - CHEST PAIN [None]
  - HEART RATE IRREGULAR [None]
